FAERS Safety Report 8001727-5 (Version None)
Quarter: 2011Q4

REPORT INFORMATION
  Report Type: 
  Country: None (occurrence: None)
  Receive Date: 20111222
  Receipt Date: 20110909
  Transmission Date: 20120403
  Serious: No
  Sender: FDA-Public Use
  Company Number: US-BAYER-2011-084563

PATIENT
  Age: 40 Year
  Sex: Male

DRUGS (1)
  1. AVELOX [Suspect]

REACTIONS (1)
  - DERMATITIS ALLERGIC [None]
